FAERS Safety Report 10757881 (Version 1)
Quarter: 2015Q1

REPORT INFORMATION
  Report Type: Spontaneous
  Country: US (occurrence: None)
  Receive Date: 20150202
  Receipt Date: 20150202
  Transmission Date: 20150721
  Serious: Yes (Other)
  Sender: FDA-Public Use
  Company Number: None

PATIENT
  Age: 60 Year
  Sex: Female
  Weight: 68.04 kg

DRUGS (6)
  1. FASLODEX [Suspect]
     Active Substance: FULVESTRANT
     Indication: BREAST CANCER METASTATIC
     Dosage: DOSAGE: ADMINISTER X2 SYRINGES 5CC EACH MONTHLY INJECTION INJECTION X2 SYRINGES 5CC EACH (MONTHLY)
     Dates: start: 201205
  2. FASLODEX [Suspect]
     Active Substance: FULVESTRANT
     Indication: METASTASES TO BONE
     Dosage: DOSAGE: ADMINISTER X2 SYRINGES 5CC EACH MONTHLY INJECTION INJECTION X2 SYRINGES 5CC EACH (MONTHLY)
     Dates: start: 201205
  3. CENTRUM [Concomitant]
     Active Substance: VITAMINS
  4. VITAMIN C [Concomitant]
     Active Substance: ASCORBIC ACID
  5. MAGNESIUM [Concomitant]
     Active Substance: MAGNESIUM
  6. VITAMIN D [Concomitant]
     Active Substance: CHOLECALCIFEROL

REACTIONS (12)
  - Product counterfeit [None]
  - Product tampering [None]
  - Peripheral swelling [None]
  - Dizziness [None]
  - Drug effect decreased [None]
  - Therapeutic response changed [None]
  - Product colour issue [None]
  - Injection site pain [None]
  - Product packaging issue [None]
  - Bone pain [None]
  - Dysgeusia [None]
  - Hot flush [None]

NARRATIVE: CASE EVENT DATE: 201208
